FAERS Safety Report 6305829-0 (Version None)
Quarter: 2009Q3

REPORT INFORMATION
  Report Type: 
  Country: None (occurrence: None)
  Receive Date: 20090812
  Receipt Date: 20090805
  Transmission Date: 20100115
  Serious: Yes (Other)
  Sender: FDA-Public Use
  Company Number: US-ASTRAZENECA-2009UW09573

PATIENT
  Age: 21040 Day
  Sex: Male
  Weight: 81.6 kg

DRUGS (1)
  1. NEXIUM [Suspect]
     Indication: GASTROOESOPHAGEAL REFLUX DISEASE
     Route: 048
     Dates: start: 20020101

REACTIONS (9)
  - DRUG EFFECT DECREASED [None]
  - GASTRITIS [None]
  - GASTROOESOPHAGEAL REFLUX DISEASE [None]
  - HIATUS HERNIA [None]
  - INTESTINAL POLYP [None]
  - LYMPHOMA [None]
  - OESOPHAGITIS [None]
  - RECTAL POLYP [None]
  - THERAPEUTIC RESPONSE UNEXPECTED [None]
